FAERS Safety Report 12326818 (Version 1)
Quarter: 2016Q2

REPORT INFORMATION
  Report Type: Spontaneous
  Country: US (occurrence: None)
  Receive Date: 20160502
  Receipt Date: 20160502
  Transmission Date: 20160815
  Serious: Yes (Hospitalization, Disabling, Other)
  Sender: FDA-Public Use
  Company Number: None

PATIENT
  Age: 19 Year
  Sex: Male
  Weight: 68.04 kg

DRUGS (2)
  1. CANNABIS SUBOXONE [Concomitant]
  2. HALDOL [Suspect]
     Active Substance: HALOPERIDOL
     Indication: DRUG THERAPY
     Dates: start: 20101010

REACTIONS (12)
  - Oesophageal stenosis [None]
  - Overdose [None]
  - Sciatica [None]
  - Suicide attempt [None]
  - Dyspnoea [None]
  - Wrong technique in product usage process [None]
  - Screaming [None]
  - Muscle tightness [None]
  - Injection site pain [None]
  - Injury [None]
  - Refusal of treatment by patient [None]
  - Thinking abnormal [None]

NARRATIVE: CASE EVENT DATE: 20101010
